FAERS Safety Report 6197308-9 (Version None)
Quarter: 2009Q2

REPORT INFORMATION
  Report Type: 
  Country: None (occurrence: None)
  Receive Date: 20090521
  Receipt Date: 20090512
  Transmission Date: 20091009
  Serious: Yes (Other)
  Sender: FDA-Public Use
  Company Number: BE-JNJFOC-20090502255

PATIENT
  Sex: Male
  Weight: 80 kg

DRUGS (4)
  1. RISPERDAL [Suspect]
     Indication: ABNORMAL BEHAVIOUR
     Route: 048
  2. LEPONEX [Suspect]
     Dosage: 1/4 TABLET 2 TIMES A DAY
     Route: 048
  3. LEPONEX [Suspect]
     Indication: ABNORMAL BEHAVIOUR
     Dosage: 1/4 TABLET 3 TIMES A DAY
     Route: 048
  4. ALLOPURINOL [Concomitant]
     Indication: GOUT
     Dosage: 1/2 TABLET A DAY
     Route: 048

REACTIONS (4)
  - DEEP VEIN THROMBOSIS [None]
  - HYPERSOMNIA [None]
  - VENOUS THROMBOSIS [None]
  - WEIGHT INCREASED [None]
